FAERS Safety Report 8112565-7 (Version None)
Quarter: 2012Q1

REPORT INFORMATION
  Report Type: 
  Country: None (occurrence: None)
  Receive Date: 20120203
  Receipt Date: 20120126
  Transmission Date: 20120608
  Serious: Yes (Hospitalization)
  Sender: FDA-Public Use
  Company Number: US-PURDUE-USA-2010-0063463

PATIENT
  Sex: Male

DRUGS (1)
  1. OXYCONTIN [Suspect]
     Indication: PAIN
     Dosage: 1040 MG, DAILY
     Dates: start: 20100918

REACTIONS (11)
  - VOMITING [None]
  - DYSPEPSIA [None]
  - DENTAL CARIES [None]
  - BREAKTHROUGH PAIN [None]
  - DRY MOUTH [None]
  - HOSPITALISATION [None]
  - ANXIETY [None]
  - ABDOMINAL DISTENSION [None]
  - ABDOMINAL DISCOMFORT [None]
  - DRUG INEFFECTIVE [None]
  - CONSTIPATION [None]
